FAERS Safety Report 7314681-6 (Version None)
Quarter: 2011Q1

REPORT INFORMATION
  Report Type: 
  Country: None (occurrence: None)
  Receive Date: 20110225
  Receipt Date: 20101208
  Transmission Date: 20110831
  Serious: No
  Sender: FDA-Public Use
  Company Number: US-MYLANLABS-2010S1020448

PATIENT
  Age: 17 Year
  Sex: Male

DRUGS (3)
  1. AMNESTEEM [Suspect]
     Route: 048
     Dates: start: 20101001, end: 20101104
  2. CLARAVIS [Suspect]
     Indication: ACNE
     Dates: start: 20100901, end: 20101001
  3. AMNESTEEM [Suspect]
     Indication: ACNE
     Route: 048
     Dates: start: 20100806, end: 20100901

REACTIONS (2)
  - AGGRESSION [None]
  - DEPRESSION [None]
